FAERS Safety Report 6381197-3 (Version None)
Quarter: 2009Q3

REPORT INFORMATION
  Report Type: 
  Country: None (occurrence: None)
  Receive Date: 20090929
  Receipt Date: 20090918
  Transmission Date: 20100115
  Serious: Yes (Other)
  Sender: FDA-Public Use
  Company Number: US-ELI_LILLY_AND_COMPANY-US200909004533

PATIENT
  Sex: Female

DRUGS (4)
  1. EVISTA [Suspect]
     Dosage: 60 MG, DAILY (1/D)
     Route: 065
  2. DIGOXIN [Concomitant]
     Dosage: UNK, EACH MORNING
     Route: 065
  3. LASIX [Concomitant]
     Dosage: UNK, EACH MORNING
     Route: 065
  4. POTASSIUM CHLORIDE [Concomitant]
     Dosage: UNK, EACH EVENING
     Route: 065

REACTIONS (1)
  - ATRIAL FIBRILLATION [None]
